FAERS Safety Report 7537352-X (Version None)
Quarter: 2011Q2

REPORT INFORMATION
  Report Type: 
  Country: None (occurrence: None)
  Receive Date: 20110609
  Receipt Date: 20110601
  Transmission Date: 20111010
  Serious: Yes (Hospitalization)
  Sender: FDA-Public Use
  Company Number: FR-MERCK-1106FRA00024

PATIENT
  Age: 44 Year
  Sex: Female

DRUGS (6)
  1. KETOCONAZOLE [Suspect]
     Indication: HYPERADRENOCORTICISM
     Route: 048
     Dates: start: 20090601, end: 20110216
  2. GLICLAZIDE [Suspect]
     Route: 048
     Dates: end: 20110216
  3. AMLODIPINE BESYLATE [Suspect]
     Route: 048
     Dates: end: 20110216
  4. METFORMIN HCL [Suspect]
     Route: 048
     Dates: end: 20110216
  5. ATORVASTATIN CALCIUM [Suspect]
     Route: 048
     Dates: start: 20110101
  6. JANUVIA [Suspect]
     Indication: TYPE 2 DIABETES MELLITUS
     Route: 048
     Dates: start: 20110101, end: 20110210

REACTIONS (1)
  - INTERSTITIAL LUNG DISEASE [None]
